FAERS Safety Report 5108990-9 (Version None)
Quarter: 2006Q3

REPORT INFORMATION
  Report Type: 
  Country: None (occurrence: None)
  Receive Date: 20060920
  Receipt Date: 20060907
  Transmission Date: 20061208
  Serious: Yes (Hospitalization)
  Sender: FDA-Public Use
  Company Number: US-AMGEN-STX192966

PATIENT
  Sex: Female
  Weight: 58.1 kg

DRUGS (1)
  1. ENBREL [Suspect]
     Indication: RHEUMATOID ARTHRITIS
     Route: 058
     Dates: start: 20010101

REACTIONS (4)
  - EPIDURAL ANAESTHESIA [None]
  - INJECTION SITE PAIN [None]
  - SURGERY [None]
  - THROMBOSIS [None]
